FAERS Safety Report 16305404 (Version 1)
Quarter: 2019Q2

REPORT INFORMATION
  Report Type: Spontaneous
  Country: US (occurrence: US)
  Receive Date: 20190513
  Receipt Date: 20190513
  Transmission Date: 20190711
  Serious: No
  Sender: FDA-Public Use
  Company Number: US-BAYER-2019-094450

PATIENT
  Age: 77 Year
  Sex: Female
  Weight: 77 kg

DRUGS (2)
  1. GREEN TEA [CAMELLIA SINENSIS LEAF] [Concomitant]
  2. CLARITIN [Suspect]
     Active Substance: LORATADINE
     Dosage: 1 DF
     Route: 048
     Dates: start: 20190508, end: 20190508

REACTIONS (4)
  - Extra dose administered [Unknown]
  - Eye swelling [Not Recovered/Not Resolved]
  - Drug ineffective [Unknown]
  - Hypersensitivity [Not Recovered/Not Resolved]

NARRATIVE: CASE EVENT DATE: 20190508
